FAERS Safety Report 7987554-3 (Version None)
Quarter: 2011Q4

REPORT INFORMATION
  Report Type: 
  Country: None (occurrence: None)
  Receive Date: 20111216
  Receipt Date: 20110412
  Transmission Date: 20120403
  Serious: No
  Sender: FDA-Public Use
  Company Number: US-BRISTOL-MYERS SQUIBB COMPANY-15668361

PATIENT
  Age: 35 Year
  Sex: Male
  Weight: 125 kg

DRUGS (6)
  1. KLONOPIN [Concomitant]
  2. ABILIFY [Suspect]
     Indication: DEPRESSION
     Dosage: INITIAL DOSE 5MG ,CUTTING A 15 MG TABLET IN HALF FOR A 7.5 MG DOSE STARTED IN MID MARCH 2011.
  3. ATIVAN [Concomitant]
     Indication: ANXIETY
  4. ABILIFY [Suspect]
     Indication: ANXIETY
     Dosage: INITIAL DOSE 5MG ,CUTTING A 15 MG TABLET IN HALF FOR A 7.5 MG DOSE STARTED IN MID MARCH 2011.
  5. ABILIFY [Suspect]
     Indication: POST-TRAUMATIC STRESS DISORDER
     Dosage: INITIAL DOSE 5MG ,CUTTING A 15 MG TABLET IN HALF FOR A 7.5 MG DOSE STARTED IN MID MARCH 2011.
  6. CELEXA [Concomitant]

REACTIONS (4)
  - HYPOAESTHESIA [None]
  - DIZZINESS [None]
  - CONFUSIONAL STATE [None]
  - WEIGHT INCREASED [None]
